FAERS Safety Report 6417876-9 (Version None)
Quarter: 2009Q4

REPORT INFORMATION
  Report Type: 
  Country: None (occurrence: None)
  Receive Date: 20091028
  Receipt Date: 20091023
  Transmission Date: 20100525
  Serious: Yes (Other)
  Sender: FDA-Public Use
  Company Number: A0813177A

PATIENT
  Age: 47 Year
  Sex: Female

DRUGS (6)
  1. VALTREX [Suspect]
     Indication: DRUG USE FOR UNKNOWN INDICATION
     Dosage: 500MG PER DAY
     Route: 048
     Dates: start: 20080501
  2. OTHER MEDICATIONS [Suspect]
     Indication: DRUG USE FOR UNKNOWN INDICATION
     Route: 065
  3. LEVOTHYROXINE SODIUM [Concomitant]
  4. NORETHINDRONE AND ETHINYL ESTRADIOL [Concomitant]
  5. ZOLPIDEM [Concomitant]
  6. ALBUTEROL [Concomitant]

REACTIONS (1)
  - MACROCYTOSIS [None]
